FAERS Safety Report 7169822-0 (Version None)
Quarter: 2010Q4

REPORT INFORMATION
  Report Type: 
  Country: None (occurrence: None)
  Receive Date: 20101206
  Receipt Date: 20101123
  Transmission Date: 20110411
  Serious: Yes (Other)
  Sender: FDA-Public Use
  Company Number: DSA_44429_2010

PATIENT
  Sex: Female

DRUGS (1)
  1. WELLBUTRIN XL [Suspect]
     Indication: PRODUCT USED FOR UNKNOWN INDICATION
     Dosage: DF,

REACTIONS (4)
  - MOVEMENT DISORDER [None]
  - MUSCLE RIGIDITY [None]
  - PARKINSONISM [None]
  - TREMOR [None]
